FAERS Safety Report 20703065 (Version 1)
Quarter: 2022Q2

REPORT INFORMATION
  Report Type: Spontaneous
  Country: LK (occurrence: LK)
  Receive Date: 20220413
  Receipt Date: 20220413
  Transmission Date: 20220720
  Serious: Yes (Other)
  Sender: FDA-Public Use
  Company Number: LK-SUN PHARMACEUTICAL INDUSTRIES LTD-2022R1-332358

PATIENT
  Age: 15 Year
  Sex: Male

DRUGS (1)
  1. ACETAZOLAMIDE [Suspect]
     Active Substance: ACETAZOLAMIDE
     Indication: Familial periodic paralysis
     Route: 065

REACTIONS (1)
  - Treatment failure [Unknown]
